FAERS Safety Report 20862305 (Version 1)
Quarter: 2022Q2

REPORT INFORMATION
  Report Type: Report from Study
  Country: DE (occurrence: DE)
  Receive Date: 20220523
  Receipt Date: 20220523
  Transmission Date: 20220721
  Serious: Yes (Hospitalization, Other)
  Sender: FDA-Public Use
  Company Number: None

PATIENT
  Age: 65 Year
  Sex: Male
  Weight: 104 kg

DRUGS (53)
  1. CAPECITABINE [Suspect]
     Active Substance: CAPECITABINE
     Indication: Colorectal cancer metastatic
     Dosage: UNK
     Dates: start: 20130919
  2. SPIRONOLACTONE [Suspect]
     Active Substance: SPIRONOLACTONE
     Indication: Product used for unknown indication
     Dosage: UNK
  3. ONIVYDE [Suspect]
     Active Substance: IRINOTECAN HYDROCHLORIDE
     Indication: Colorectal cancer metastatic
     Dosage: 422 MILLIGRAM, Q3W
     Route: 042
     Dates: start: 20130919, end: 20131010
  4. XELODA [Suspect]
     Active Substance: CAPECITABINE
     Indication: Colorectal cancer metastatic
     Dosage: 1650 MILLIGRAM, QD 3300 TO 2500 MG
     Route: 048
     Dates: start: 20130919, end: 20131003
  5. XELODA [Suspect]
     Active Substance: CAPECITABINE
     Indication: Colorectal cancer
  6. AVASTIN [Suspect]
     Active Substance: BEVACIZUMAB
     Indication: Colorectal cancer metastatic
     Dosage: DAILY DOSE: 773 MG MILLIGRAM(S) EVERY 3 WEEK
     Route: 042
     Dates: start: 20130919, end: 20131010
  7. BEVACIZUMAB [Suspect]
     Active Substance: BEVACIZUMAB
     Indication: Colorectal cancer metastatic
     Dosage: UNK UNK, Q3W
     Dates: start: 20130919, end: 20131010
  8. FUROSEMIDE [Concomitant]
     Active Substance: FUROSEMIDE
     Dosage: 40 MILLIGRAM, QD
     Route: 065
  9. FUROSEMIDE [Concomitant]
     Active Substance: FUROSEMIDE
     Dosage: UNK
  10. RAMIPRIL [Concomitant]
     Active Substance: RAMIPRIL
     Indication: Hypertension
     Dosage: 2.5 MILLIGRAM
     Route: 048
     Dates: start: 20130919
  11. INNOHEP [Concomitant]
     Active Substance: TINZAPARIN SODIUM
     Dosage: 0.7 MILLILITER
     Route: 058
  12. INNOHEP [Concomitant]
     Active Substance: TINZAPARIN SODIUM
     Dosage: UNK
  13. ASPIRIN [Concomitant]
     Active Substance: ASPIRIN
     Dosage: DAILY DOSE: 100 MG MILLIGRAM(S) EVERY DAY
     Route: 065
  14. VICTOZA [Concomitant]
     Active Substance: LIRAGLUTIDE
     Dosage: DAILY DOSE: 1.2 MG MILLIGRAM(S) EVERY DAY
     Route: 058
  15. VICTOZA [Concomitant]
     Active Substance: LIRAGLUTIDE
     Dosage: UNK
  16. TORSEMIDE [Concomitant]
     Active Substance: TORSEMIDE
     Dosage: DAILY DOSE: 100 MG MILLIGRAM(S) EVERY DAY
     Route: 065
  17. TORSEMIDE [Concomitant]
     Active Substance: TORSEMIDE
     Dosage: UNK
  18. SPIRONOLACTONE [Concomitant]
     Active Substance: SPIRONOLACTONE
     Indication: Product used for unknown indication
     Dosage: DAILY DOSE: 50 MG MILLIGRAM(S) EVERY DAY
     Route: 065
  19. SPIRONOLACTONE [Concomitant]
     Active Substance: SPIRONOLACTONE
     Dosage: UNK
  20. GLYBURIDE [Concomitant]
     Active Substance: GLYBURIDE
     Indication: Diabetes mellitus
     Dosage: 2 MILLIGRAM
     Route: 048
  21. GLYBURIDE [Concomitant]
     Active Substance: GLYBURIDE
     Dosage: UNK
  22. LEVEMIR [Concomitant]
     Active Substance: INSULIN DETEMIR
     Dosage: 24 INTERNATIONAL UNIT
     Route: 058
  23. LEVEMIR [Concomitant]
     Active Substance: INSULIN DETEMIR
     Dosage: 10 INTERNATIONAL UNIT, QD
     Route: 058
  24. LEVEMIR [Concomitant]
     Active Substance: INSULIN DETEMIR
     Dosage: UNK
  25. DIGITOXIN [Concomitant]
     Active Substance: DIGITOXIN
     Dosage: UNK UNK, QD
     Route: 065
  26. DIGITOXIN [Concomitant]
     Active Substance: DIGITOXIN
     Dosage: UNK
  27. METOPROLOL [Concomitant]
     Active Substance: METOPROLOL
     Dosage: DAILY DOSE: 47.5 MG MILLIGRAM(S) EVERY DAY
     Route: 065
  28. AMARYL [Concomitant]
     Active Substance: GLIMEPIRIDE
     Dosage: 2 MILLIGRAM
     Route: 065
  29. AMARYL [Concomitant]
     Active Substance: GLIMEPIRIDE
     Dosage: UNK
  30. INSULIN NOS [Concomitant]
     Active Substance: INSULIN NOS
     Dosage: UNK
  31. Pantenol [Concomitant]
     Dosage: UNK, QD MOUTHWASH
     Route: 065
  32. Pantenol [Concomitant]
     Dosage: UNK
  33. FENTANYL [Concomitant]
     Active Substance: FENTANYL
     Indication: Product used for unknown indication
     Dosage: DAILY DOSE: 75 ?G MICROGRAM(S) EVERY DAY
     Route: 065
  34. FENTANYL [Concomitant]
     Active Substance: FENTANYL
     Dosage: UNK
  35. OXETACAINE [Concomitant]
     Active Substance: OXETHAZAINE
     Indication: Product used for unknown indication
     Dosage: UNK
  36. ASPIRIN [Concomitant]
     Active Substance: ASPIRIN
     Dosage: UNK
  37. LIRAGLUTIDE [Concomitant]
     Active Substance: LIRAGLUTIDE
     Indication: Product used for unknown indication
     Dosage: UNK
  38. DEXPANTHENOL [Concomitant]
     Active Substance: DEXPANTHENOL
     Indication: Product used for unknown indication
     Dosage: UNK
  39. ALUMINUM HYDROXIDE [Concomitant]
     Active Substance: ALUMINUM HYDROXIDE
     Indication: Product used for unknown indication
     Dosage: UNK
  40. PANTOPRAZOLE SODIUM [Concomitant]
     Active Substance: PANTOPRAZOLE SODIUM
     Indication: Product used for unknown indication
     Dosage: UNK
  41. PANTOPRAZOLE SODIUM [Concomitant]
     Active Substance: PANTOPRAZOLE SODIUM
     Dosage: DAILY DOSE: 40 MG MILLIGRAM(S) EVERY DAY
     Route: 065
  42. PANTOPRAZOLE SODIUM [Concomitant]
     Active Substance: PANTOPRAZOLE SODIUM
     Dosage: UDAILY DOSE: 80 MG MILLIGRAM(S) EVERY DAY
     Route: 042
  43. MAGNESIUM HYDROXIDE [Concomitant]
     Active Substance: MAGNESIUM HYDROXIDE
     Indication: Product used for unknown indication
     Dosage: UNK
  44. TORSEMIDE [Concomitant]
     Active Substance: TORSEMIDE
     Indication: Product used for unknown indication
     Dosage: UNK
  45. METOPROLOL TARTRATE [Concomitant]
     Active Substance: METOPROLOL TARTRATE
     Dosage: UNK
  46. HYDROCHLOROTHIAZIDE [Concomitant]
     Active Substance: HYDROCHLOROTHIAZIDE
     Indication: Product used for unknown indication
     Dosage: UNK
  47. INSULIN DETEMIR [Concomitant]
     Active Substance: INSULIN DETEMIR
     Indication: Product used for unknown indication
     Dosage: UNK
  48. GLIMEPIRIDE [Concomitant]
     Active Substance: GLIMEPIRIDE
     Indication: Product used for unknown indication
     Dosage: UNK
  49. TINZAPARIN SODIUM [Concomitant]
     Active Substance: TINZAPARIN SODIUM
     Indication: Product used for unknown indication
     Dosage: UNK
  50. ALUMINUM HYDROXIDE\MAGNESIUM OXIDE\OXETHAZAINE [Concomitant]
     Active Substance: ALUMINUM HYDROXIDE\MAGNESIUM OXIDE\OXETHAZAINE
     Dosage: 1 DOSAGE FORM, QD
     Route: 065
  51. ASPIRIN [Concomitant]
     Active Substance: ASPIRIN
     Indication: Product used for unknown indication
     Dosage: UNK
  52. PANTOZOL [Concomitant]
     Active Substance: PANTOPRAZOLE SODIUM
     Dosage: UNK
  53. METOPROLOL SUCCINATE [Concomitant]
     Active Substance: METOPROLOL SUCCINATE
     Dosage: UNK
     Dates: start: 20130919

REACTIONS (8)
  - Pancytopenia [Recovered/Resolved]
  - Dysphagia [Recovered/Resolved]
  - General physical health deterioration [Recovered/Resolved]
  - Acute kidney injury [Recovered/Resolved]
  - Hyperkalaemia [Recovered/Resolved]
  - Stomatitis [Recovered/Resolved]
  - Diarrhoea [Recovered/Resolved]
  - Off label use [Unknown]

NARRATIVE: CASE EVENT DATE: 20131001
